FAERS Safety Report 4582735-3 (Version None)
Quarter: 2005Q1

REPORT INFORMATION
  Report Type: 
  Country: None (occurrence: None)
  Receive Date: 20050125
  Receipt Date: 20040816
  Transmission Date: 20050727
  Serious: Yes (Hospitalization)
  Sender: FDA-Public Use
  Company Number: PHEH2004US08875

PATIENT
  Age: 56 Year
  Sex: Female
  Weight: 57.6 kg

DRUGS (1)
  1. SANDOSTATIN LAR [Suspect]
     Indication: CARCINOID SYNDROME
     Dosage: 20 MG, QMO, INTRAMUSCULAR
     Route: 030
     Dates: start: 20040524, end: 20040701

REACTIONS (1)
  - ABDOMINAL PAIN [None]
